FAERS Safety Report 10406335 (Version 2)
Quarter: 2014Q3

REPORT INFORMATION
  Report Type: Spontaneous
  Country: US (occurrence: US)
  Receive Date: 20140825
  Receipt Date: 20140904
  Transmission Date: 20150326
  Serious: No
  Sender: FDA-Public Use
  Company Number: US-PFIZER INC-2014232551

PATIENT
  Sex: Male

DRUGS (2)
  1. GLIPIZIDE. [Suspect]
     Active Substance: GLIPIZIDE
     Dosage: UNK
  2. TRADJENTA [Suspect]
     Active Substance: LINAGLIPTIN
     Dosage: UNK

REACTIONS (1)
  - Drug ineffective [Unknown]
